FAERS Safety Report 10908337 (Version 2)
Quarter: 2015Q2

REPORT INFORMATION
  Report Type: Spontaneous
  Country: BR (occurrence: None)
  Receive Date: 20150309
  Receipt Date: 20150402
  Transmission Date: 20150821
  Serious: Yes (Hospitalization, Other)
  Sender: FDA-Public Use
  Company Number: 2014151595

PATIENT
  Age: 36 Year
  Sex: Female
  Weight: 65 kg

DRUGS (4)
  1. NATELE (ASCORBIC ACID, CALCIUM CARBONATE, COLECALCIFEROL, CYANOCOBALAMIN, FERROUS FUMARATE, FOLIC ACID, NICOTINAMIDE, PYRIDOXINE HYDROCHLORIDE, RETINOL PALMITATE, RIBOFLAVIN, THIAMINE MONONITRATE, TOCOPHERYL ACETATE, ZINC OXIDE) [Concomitant]
  2. FOLIC ACID. [Concomitant]
     Active Substance: FOLIC ACID
  3. PREMARIN [Suspect]
     Active Substance: ESTROGENS, CONJUGATED
     Indication: ASSISTED FERTILISATION
     Dosage: (2 TABLETS OF 0.625MG PER DAY)
     Dates: start: 20140508, end: 20140619
  4. FRAGMIN [Suspect]
     Active Substance: DALTEPARIN SODIUM
     Indication: HYPERCOAGULATION
     Dates: start: 20140507

REACTIONS (6)
  - Abortion spontaneous [None]
  - Haemorrhage in pregnancy [None]
  - Exposure during pregnancy [None]
  - Off label use [None]
  - Premature separation of placenta [None]
  - Nausea [None]

NARRATIVE: CASE EVENT DATE: 20140603
